FAERS Safety Report 20681790 (Version 2)
Quarter: 2022Q3

REPORT INFORMATION
  Report Type: Spontaneous
  Country: US (occurrence: US)
  Receive Date: 20220407
  Receipt Date: 20220703
  Transmission Date: 20221027
  Serious: Yes (Other)
  Sender: FDA-Public Use
  Company Number: US-JNJFOC-20220406862

PATIENT
  Age: 6 Decade
  Sex: Female

DRUGS (20)
  1. ELMIRON [Suspect]
     Active Substance: PENTOSAN POLYSULFATE SODIUM
     Indication: Cystitis interstitial
     Route: 048
     Dates: start: 2013, end: 2019
  2. ELMIRON [Suspect]
     Active Substance: PENTOSAN POLYSULFATE SODIUM
     Route: 048
     Dates: start: 201311, end: 201912
  3. CLOBETASOL [Concomitant]
     Active Substance: CLOBETASOL
     Indication: Pruritus
     Dosage: 0.05
     Dates: start: 20141202
  4. CYCLOBENZAPRINE [Concomitant]
     Active Substance: CYCLOBENZAPRINE
     Indication: Antibiotic therapy
     Dates: start: 20140825
  5. ESCITALOPRAM [Concomitant]
     Active Substance: ESCITALOPRAM OXALATE
     Dates: start: 20140725
  6. ESTRACE [Concomitant]
     Active Substance: ESTRADIOL
     Indication: Hormone replacement therapy
     Dosage: 0.01%
     Dates: start: 20140731
  7. ESTRADIOL [Concomitant]
     Active Substance: ESTRADIOL
     Indication: Hormone replacement therapy
     Dates: start: 20140725
  8. GABAPENTIN [Concomitant]
     Active Substance: GABAPENTIN
     Indication: Analgesic therapy
     Dates: start: 20140808
  9. GENTAMICIN [Concomitant]
     Active Substance: GENTAMICIN
     Indication: Urinary tract infection
     Dates: start: 20140924
  10. HEPARIN [Concomitant]
     Active Substance: HEPARIN SODIUM
     Dates: start: 20140924
  11. HYDROCODONE [Concomitant]
     Active Substance: HYDROCODONE
     Indication: Analgesic therapy
     Dates: start: 20140731
  12. TRAZODONE [Concomitant]
     Active Substance: TRAZODONE HYDROCHLORIDE
     Indication: Analgesic therapy
     Dates: start: 20010112
  13. TRAMADOL [Concomitant]
     Active Substance: TRAMADOL
     Indication: Pain
     Dates: start: 20010318
  14. HYDROXYZINE [Concomitant]
     Active Substance: HYDROXYZINE HYDROCHLORIDE
     Indication: Cystitis interstitial
     Dates: start: 20140731
  15. CYCLOBENZAPRINE [Concomitant]
     Active Substance: CYCLOBENZAPRINE
     Indication: Myalgia
     Dates: start: 20140825
  16. ESTRACE [Concomitant]
     Active Substance: ESTRADIOL
     Indication: Hormone replacement therapy
     Dosage: 0.01%
     Dates: start: 20140725
  17. HYOSCYAMINE SULFATE [Concomitant]
     Active Substance: HYOSCYAMINE SULFATE
     Indication: Gastric disorder
     Dates: start: 20140731
  18. LEVOFLOXACIN [Concomitant]
     Active Substance: LEVOFLOXACIN
     Indication: Sinusitis
     Dates: start: 20141001
  19. BUPIVACAINE HYDROCHLORIDE [Concomitant]
     Active Substance: BUPIVACAINE HYDROCHLORIDE
     Indication: Spinal pain
     Dosage: 0.5%
     Dates: start: 20140924
  20. TAMIFLU [Concomitant]
     Active Substance: OSELTAMIVIR PHOSPHATE
     Indication: Influenza
     Dates: start: 20141226

REACTIONS (3)
  - Maculopathy [Unknown]
  - Anxiety [Unknown]
  - Depression [Not Recovered/Not Resolved]

NARRATIVE: CASE EVENT DATE: 20140101
